FAERS Safety Report 14524431 (Version 2)
Quarter: 2018Q3

REPORT INFORMATION
  Report Type: Spontaneous
  Country: US (occurrence: US)
  Receive Date: 20180213
  Receipt Date: 20180801
  Transmission Date: 20181010
  Serious: No
  Sender: FDA-Public Use
  Company Number: US-PFIZER INC-2018061699

PATIENT
  Age: 54 Year
  Sex: Male

DRUGS (1)
  1. SUTENT [Suspect]
     Active Substance: SUNITINIB MALATE
     Dosage: 50 MG, UNK
     Dates: start: 20170828

REACTIONS (4)
  - Neoplasm progression [Unknown]
  - Oesophageal discomfort [Unknown]
  - Dyspepsia [Not Recovered/Not Resolved]
  - Chest pain [Unknown]
